FAERS Safety Report 16526293 (Version 1)
Quarter: 2019Q3

REPORT INFORMATION
  Report Type: Spontaneous
  Country: DK (occurrence: DK)
  Receive Date: 20190703
  Receipt Date: 20190703
  Transmission Date: 20191004
  Serious: Yes (Disabling)
  Sender: FDA-Public Use
  Company Number: DK-PFIZER INC-2019278268

PATIENT
  Age: 76 Year
  Sex: Female

DRUGS (11)
  1. COLREFUZ [Concomitant]
     Active Substance: COLCHICINE
     Indication: ARTHRITIS
     Dosage: 1000 UG, 1X/DAY
     Route: 048
     Dates: start: 20170327
  2. FUROSEMIDE. [Concomitant]
     Active Substance: FUROSEMIDE
     Indication: DIURETIC THERAPY
     Dosage: 80 MG, 1X/DAY
     Route: 048
     Dates: start: 20170215
  3. JANUMET [Concomitant]
     Active Substance: METFORMIN HYDROCHLORIDE\SITAGLIPTIN PHOSPHATE
     Indication: DIABETES MELLITUS
     Dosage: 2 DF, 1X/DAY (STRENGTH: 850 + 50 MG)
     Route: 048
     Dates: start: 20170608
  4. SPIRIX [Concomitant]
     Active Substance: SPIRONOLACTONE
     Indication: CARDIAC FAILURE
     Dosage: 25 MG, 1X/DAY
     Route: 048
     Dates: start: 20140603
  5. BENDROZA [Concomitant]
     Active Substance: BENDROFLUMETHIAZIDE\POTASSIUM CHLORIDE
     Indication: DIURETIC THERAPY
     Dosage: 1 DF, ALTERNATE DAY (STRENGTH: 2.5+573 MG.)
     Route: 048
     Dates: start: 20170210
  6. DEXOFAN [DEXTROMETHORPHAN HYDROBROMIDE] [Concomitant]
     Indication: COUGH
     Dosage: 60 MG, 1X/DAY
     Route: 048
     Dates: start: 20140718
  7. PAMOL [Concomitant]
     Active Substance: ACETAMINOPHEN
     Indication: PAIN
     Dosage: 1000 MG, AS NEEDED (DOSE: 2 TABLETS, MAX 4 TIMES DAILY)
     Route: 048
     Dates: start: 20150601
  8. XARELTO [Concomitant]
     Active Substance: RIVAROXABAN
     Indication: THROMBOSIS PROPHYLAXIS
     Dosage: 15 MG, 1X/DAY
     Route: 048
     Dates: start: 20170214
  9. CHAMPIX [Suspect]
     Active Substance: VARENICLINE TARTRATE
     Indication: SMOKING CESSATION THERAPY
     Dosage: 1 DF, 1X/DAY (STRENGTH: 0.5 MG + 1 MG)
     Route: 048
     Dates: start: 20190128, end: 20190219
  10. DIGOXIN DAK [Concomitant]
     Active Substance: DIGOXIN
     Indication: HEART RATE IRREGULAR
     Dosage: 250 UG, 1X/DAY
     Route: 048
     Dates: start: 20170220
  11. ODRIK [Concomitant]
     Active Substance: TRANDOLAPRIL
     Indication: CARDIAC DISORDER
     Dosage: 4 MG, 1X/DAY
     Route: 048
     Dates: start: 20130326

REACTIONS (1)
  - Colitis microscopic [Not Recovered/Not Resolved]

NARRATIVE: CASE EVENT DATE: 20190128
